FAERS Safety Report 7407731-X (Version None)
Quarter: 2011Q2

REPORT INFORMATION
  Report Type: 
  Country: None (occurrence: None)
  Receive Date: 20110412
  Receipt Date: 20101117
  Transmission Date: 20111010
  Serious: Yes (Hospitalization)
  Sender: FDA-Public Use
  Company Number: IT-BAYER-201047418GPV

PATIENT
  Age: 21 Year
  Sex: Male

DRUGS (3)
  1. ASPIRIN [Suspect]
     Indication: HEADACHE
     Dosage: 500 MG (DAILY DOSE), , ORAL
     Route: 048
     Dates: start: 20101108, end: 20101115
  2. NUROFEN [Suspect]
     Indication: HEADACHE
     Dosage: 200 MG (DAILY DOSE), , ORAL
     Route: 048
     Dates: start: 20101108, end: 20101115
  3. IBRUPROFEN [Suspect]
     Indication: HEADACHE
     Dosage: 600 MG (DAILY DOSE), , ORAL
     Route: 048
     Dates: start: 20101108, end: 20101115

REACTIONS (1)
  - URTICARIA PAPULAR [None]
